FAERS Safety Report 6887416-9 (Version None)
Quarter: 2010Q3

REPORT INFORMATION
  Report Type: 
  Country: None (occurrence: None)
  Receive Date: 20100730
  Receipt Date: 20100402
  Transmission Date: 20110219
  Serious: No
  Sender: FDA-Public Use
  Company Number: A0853226A

PATIENT
  Age: 44 Year
  Sex: Male

DRUGS (4)
  1. SUMATRIPTAN SUCCINATE [Suspect]
     Indication: MIGRAINE
     Dosage: 100MG VARIABLE DOSE
     Route: 048
     Dates: start: 20060101
  2. OTHER MEDICATIONS [Concomitant]
  3. FLOMAX [Concomitant]
  4. OXYGEN [Concomitant]

REACTIONS (1)
  - INCORRECT DOSE ADMINISTERED [None]
